FAERS Safety Report 5062865-2 (Version None)
Quarter: 2006Q3

REPORT INFORMATION
  Report Type: 
  Country: None (occurrence: None)
  Receive Date: 20060724
  Receipt Date: 20060706
  Transmission Date: 20061208
  Serious: Yes (Death)
  Sender: FDA-Public Use
  Company Number: 2001061121JP

PATIENT
  Age: 61 Year
  Sex: Male

DRUGS (3)
  1. CAMPTOSAR [Suspect]
     Indication: SMALL CELL LUNG CANCER STAGE UNSPECIFIED
     Dosage: 150 MG (1 IN ? D), INTRAVENOUS
     Route: 042
     Dates: start: 20010524, end: 20010531
  2. NEU-UP (NARTOGRASTIM) [Suspect]
     Indication: DRUG USE FOR UNKNOWN INDICATION
     Dosage: 50 MCG SUBCUTANEOUS
     Route: 058
     Dates: start: 20010525, end: 20010529
  3. NEU-UP (NARTOGRASTIM) [Suspect]
     Indication: DRUG USE FOR UNKNOWN INDICATION
     Dosage: 50 MCG SUBCUTANEOUS
     Route: 058
     Dates: start: 20010601, end: 20010603

REACTIONS (5)
  - ACUTE RESPIRATORY FAILURE [None]
  - CONDITION AGGRAVATED [None]
  - INTERSTITIAL LUNG DISEASE [None]
  - METASTASES TO LYMPH NODES [None]
  - PNEUMOCYSTIS JIROVECI PNEUMONIA [None]
